FAERS Safety Report 22006982 (Version 1)
Quarter: 2023Q1

REPORT INFORMATION
  Report Type: Spontaneous
  Country: HU (occurrence: HU)
  Receive Date: 20230217
  Receipt Date: 20230217
  Transmission Date: 20230417
  Serious: Yes (Death)
  Sender: FDA-Public Use
  Company Number: HU-BAUSCH-BL-2023-002893

PATIENT
  Age: 38 Year
  Sex: Male
  Weight: 82.09 kg

DRUGS (1)
  1. WELLBUTRIN XL [Suspect]
     Active Substance: BUPROPION HYDROCHLORIDE
     Indication: Depression
     Route: 065

REACTIONS (5)
  - Toxicity to various agents [Fatal]
  - Product contamination [Unknown]
  - Product counterfeit [Unknown]
  - Product quality issue [Unknown]
  - Poor quality product administered [Unknown]
